FAERS Safety Report 8959047 (Version 1)
Quarter: 2012Q4

REPORT INFORMATION
  Report Type: 
  Country: JP (occurrence: JP)
  Receive Date: 20121212
  Receipt Date: 20121212
  Transmission Date: 20130627
  Serious: Yes (Hospitalization)
  Sender: FDA-Public Use
  Company Number: PHHY2012JP113692

PATIENT
  Age: 53 Year
  Sex: Female

DRUGS (1)
  1. GILENYA [Suspect]
     Dosage: 0.5 mg, QD
     Route: 048

REACTIONS (3)
  - Depressed level of consciousness [Unknown]
  - Road traffic accident [Unknown]
  - Pyrexia [Unknown]
